FAERS Safety Report 20981667 (Version 5)
Quarter: 2023Q2

REPORT INFORMATION
  Report Type: Report from Study
  Country: US (occurrence: None)
  Receive Date: 20220620
  Receipt Date: 20230509
  Transmission Date: 20230721
  Serious: Yes (Death, Hospitalization)
  Sender: FDA-Public Use
  Company Number: US-ROCHE-3118124

PATIENT
  Age: 74 Year
  Sex: Male
  Weight: 83.5 kg

DRUGS (10)
  1. COBIMETINIB [Suspect]
     Active Substance: COBIMETINIB
     Indication: Chronic myelomonocytic leukaemia
     Dosage: 21 DAYS
     Route: 048
     Dates: start: 20210607, end: 20220611
  2. COBIMETINIB [Suspect]
     Active Substance: COBIMETINIB
     Route: 048
     Dates: start: 20230112, end: 20230202
  3. FUROSEMIDE [Concomitant]
     Active Substance: FUROSEMIDE
     Dates: start: 20220315
  4. POTASSIUM CHLORIDE [Concomitant]
     Active Substance: POTASSIUM CHLORIDE
     Dosage: 20MEQ
     Dates: start: 20220315
  5. TRIAMCINOLONE [Concomitant]
     Active Substance: TRIAMCINOLONE
     Dosage: 0.1%
     Dates: start: 20220315
  6. CETIRIZINE HCL [Concomitant]
     Active Substance: CETIRIZINE HYDROCHLORIDE
     Dates: start: 20220214
  7. PSYLLIUM [Concomitant]
     Active Substance: PLANTAGO SEED
     Dosage: 58.6%
     Dates: start: 20220214
  8. FAMOTIDINE [Concomitant]
     Active Substance: FAMOTIDINE
     Dates: start: 20220118
  9. HYDROCORTISONE [Concomitant]
     Active Substance: HYDROCORTISONE
     Dosage: 1%
     Dates: start: 20210808
  10. WARFARIN [Concomitant]
     Active Substance: WARFARIN
     Dosage: HELD DURING EVENT
     Dates: start: 20210706, end: 20220611

REACTIONS (6)
  - Death [Fatal]
  - Haemorrhoidal haemorrhage [Not Recovered/Not Resolved]
  - Anaemia [Unknown]
  - Rectal haemorrhage [Unknown]
  - Diverticulitis [Unknown]
  - Lower gastrointestinal haemorrhage [Not Recovered/Not Resolved]

NARRATIVE: CASE EVENT DATE: 20220609
